FAERS Safety Report 5526253-4 (Version None)
Quarter: 2007Q4

REPORT INFORMATION
  Report Type: 
  Country: None (occurrence: None)
  Receive Date: 20071127
  Receipt Date: 20071119
  Transmission Date: 20080405
  Serious: Yes (Other)
  Sender: FDA-Public Use
  Company Number: US-JNJFOC-20071107326

PATIENT
  Age: 2 Year
  Sex: Male
  Weight: 12.7 kg

DRUGS (2)
  1. TYLENOL [Suspect]
  2. TYLENOL [Suspect]
     Indication: TEETHING
     Dosage: UNKNOWN DOSE, ONCE IN MORNING AND ONCE IN EVENING

REACTIONS (3)
  - CYANOSIS [None]
  - HEART RATE INCREASED [None]
  - RESPIRATORY DISORDER [None]
